FAERS Safety Report 11660013 (Version 1)
Quarter: 2015Q4

REPORT INFORMATION
  Report Type: Spontaneous
  Country: US (occurrence: None)
  Receive Date: 20151023
  Receipt Date: 20151023
  Transmission Date: 20160304
  Serious: Yes (Life-Threatening)
  Sender: FDA-Public Use
  Company Number: None

PATIENT
  Age: 64 Year
  Sex: Male

DRUGS (2)
  1. DOXEPIN [Concomitant]
     Active Substance: DOXEPIN
  2. TARGRETIN [Suspect]
     Active Substance: BEXAROTENE
     Indication: NEOPLASM MALIGNANT
     Route: 048
     Dates: start: 20150911, end: 20151022

REACTIONS (1)
  - Blood triglycerides increased [None]

NARRATIVE: CASE EVENT DATE: 20151022
